FAERS Safety Report 22036111 (Version 1)
Quarter: 2023Q1

REPORT INFORMATION
  Report Type: Spontaneous
  Country: IL (occurrence: IL)
  Receive Date: 20230224
  Receipt Date: 20230224
  Transmission Date: 20230417
  Serious: Yes (Disabling)
  Sender: FDA-Public Use
  Company Number: IL-TEVA-2023-IL-2859895

PATIENT
  Age: 52 Year
  Sex: Male

DRUGS (2)
  1. SPIRONOLACTONE [Suspect]
     Active Substance: SPIRONOLACTONE
     Indication: Product used for unknown indication
     Dates: start: 20221101
  2. EXFORGE [Concomitant]
     Active Substance: AMLODIPINE BESYLATE\VALSARTAN
     Indication: Product used for unknown indication
     Dosage: AMLODIPINE 10 MG/VALSARTAN  160 MG

REACTIONS (5)
  - Abdominal pain [Unknown]
  - Dyspepsia [Unknown]
  - Libido decreased [Unknown]
  - Breast pain [Unknown]
  - Gynaecomastia [Unknown]
